FAERS Safety Report 26146506 (Version 1)
Quarter: 2025Q4

REPORT INFORMATION
  Report Type: Spontaneous
  Country: US (occurrence: US)
  Receive Date: 20251211
  Receipt Date: 20251211
  Transmission Date: 20260117
  Serious: Yes (Other)
  Sender: TAKEDA
  Company Number: US-TAKEDA-2025TUS112389

PATIENT
  Sex: Male

DRUGS (3)
  1. VELCADE [Suspect]
     Active Substance: BORTEZOMIB
     Indication: Product used for unknown indication
     Dosage: UNK
  2. DARZALEX [Concomitant]
     Active Substance: DARATUMUMAB
     Dosage: UNK
  3. TECVAYLI [Concomitant]
     Active Substance: TECLISTAMAB-CQYV
     Dosage: UNK

REACTIONS (1)
  - Neuropathy peripheral [Not Recovered/Not Resolved]
